FAERS Safety Report 6191260-8 (Version None)
Quarter: 2009Q2

REPORT INFORMATION
  Report Type: 
  Country: None (occurrence: None)
  Receive Date: 20090513
  Receipt Date: 20090513
  Transmission Date: 20091009
  Serious: Yes (Other)
  Sender: FDA-Public Use
  Company Number: None

PATIENT
  Sex: Female
  Weight: 73.0291 kg

DRUGS (1)
  1. AGGRENOX [Suspect]
     Indication: TRANSIENT ISCHAEMIC ATTACK
     Dosage: 1 CAP X 7 DAYS THEN 1 CAP 2X DAY ORAL
     Route: 048
     Dates: start: 20090405, end: 20090410

REACTIONS (5)
  - ABDOMINAL DISTENSION [None]
  - ABDOMINAL PAIN [None]
  - DIARRHOEA [None]
  - FLATULENCE [None]
  - NAUSEA [None]
